FAERS Safety Report 18173377 (Version 3)
Quarter: 2021Q2

REPORT INFORMATION
  Report Type: Report from Study
  Country: US (occurrence: US)
  Receive Date: 20200820
  Receipt Date: 20210514
  Transmission Date: 20210717
  Serious: Yes (Death, Life-Threatening, Hospitalization, Other)
  Sender: FDA-Public Use
  Company Number: US-ROCHE-2661076

PATIENT
  Age: 59 Year
  Sex: Female
  Weight: 56.69 kg

DRUGS (9)
  1. ATEZOLIZUMAB. [Suspect]
     Active Substance: ATEZOLIZUMAB
     Indication: NON-SMALL CELL LUNG CANCER
     Dosage: ON 02/JUL/2020, SHE RECEIVED MOST RECENT DOSE OF ATEZOLIZUMAB PRIOR TO ONSET OF SERIOUS ADVERSE EVEN
     Route: 042
     Dates: start: 20190419, end: 20200723
  2. XL184 [Suspect]
     Active Substance: CABOZANTINIB
     Indication: NON-SMALL CELL LUNG CANCER
     Dosage: ON 22/JUL/2020, SHE RECEIVED THE MOST RECENT DOSE OF CABOZANTINIB PRIOR TO ONSET OF SERIOUS ADVERSE
     Route: 048
     Dates: start: 20190419, end: 20200723
  3. NALOXONE [Concomitant]
     Active Substance: NALOXONE
  4. OXYCODONE [Concomitant]
     Active Substance: OXYCODONE
  5. ZOFRAN [Concomitant]
     Active Substance: ONDANSETRON HYDROCHLORIDE
  6. TESSALON [Concomitant]
     Active Substance: BENZONATATE
  7. PROTONIX [Concomitant]
     Active Substance: PANTOPRAZOLE SODIUM
  8. AMLODIPINE [Concomitant]
     Active Substance: AMLODIPINE BESYLATE
  9. MAGNESIUM [Concomitant]
     Active Substance: MAGNESIUM

REACTIONS (3)
  - Disease progression [Fatal]
  - Septic shock [Unknown]
  - Large intestine perforation [Unknown]

NARRATIVE: CASE EVENT DATE: 20200728
